FAERS Safety Report 23528103 (Version 1)
Quarter: 2024Q1

REPORT INFORMATION
  Report Type: Spontaneous
  Country: US (occurrence: US)
  Receive Date: 20240215
  Receipt Date: 20240215
  Transmission Date: 20240410
  Serious: No
  Sender: FDA-Public Use
  Company Number: US-GLENMARK PHARMACEUTICALS-2023GMK084744

PATIENT

DRUGS (1)
  1. TACROLIMUS [Suspect]
     Active Substance: TACROLIMUS
     Indication: Psoriasis
     Dosage: UNK UNK, BID
     Route: 065
     Dates: start: 202303

REACTIONS (4)
  - Poor quality product administered [Unknown]
  - Product use in unapproved indication [Unknown]
  - Product leakage [Unknown]
  - Product packaging issue [Unknown]

NARRATIVE: CASE EVENT DATE: 20230301
